FAERS Safety Report 4507882-3 (Version None)
Quarter: 2004Q4

REPORT INFORMATION
  Report Type: 
  Country: None (occurrence: None)
  Receive Date: 20041123
  Receipt Date: 20040415
  Transmission Date: 20050328
  Serious: Yes (Other)
  Sender: FDA-Public Use
  Company Number: US-ROCHE-364785

PATIENT
  Sex: Male

DRUGS (5)
  1. PEGASYS [Suspect]
     Indication: HEPATITIS
     Dosage: ROUTE DESCRIBED AS INJECTION.
     Route: 050
     Dates: start: 20030715, end: 20040815
  2. COPEGUS [Suspect]
     Indication: HEPATITIS
     Route: 048
     Dates: end: 20040815
  3. UNKNOWN MEDICATION [Concomitant]
     Indication: DEPRESSION
     Dosage: DESCRIBED AS SEROQUIL.
  4. PAXIL [Concomitant]
     Indication: DEPRESSION
  5. DEPAKOTE [Concomitant]
     Indication: DEPRESSION

REACTIONS (20)
  - AGGRESSION [None]
  - ANGER [None]
  - ANOREXIA [None]
  - ARTHRALGIA [None]
  - ASTHENIA [None]
  - BACK PAIN [None]
  - CYANOSIS [None]
  - DEPRESSION [None]
  - DISSOCIATION [None]
  - DYSPNOEA [None]
  - FATIGUE [None]
  - FULL BLOOD COUNT ABNORMAL [None]
  - HOMICIDAL IDEATION [None]
  - HOSTILITY [None]
  - HYPERHIDROSIS [None]
  - HYPERSOMNIA [None]
  - MYALGIA [None]
  - PALLOR [None]
  - RASH [None]
  - SELF-INJURIOUS IDEATION [None]
